FAERS Safety Report 11662582 (Version 1)
Quarter: 2015Q4

REPORT INFORMATION
  Report Type: Spontaneous
  Country: US (occurrence: US)
  Receive Date: 20151027
  Receipt Date: 20151027
  Transmission Date: 20160304
  Serious: No
  Sender: FDA-Public Use
  Company Number: US-MEDA-2014060074

PATIENT
  Age: 78 Year
  Sex: Female
  Weight: 70 kg

DRUGS (3)
  1. ASTEPRO [Suspect]
     Active Substance: AZELASTINE HYDROCHLORIDE
     Indication: COUGH
     Dates: start: 20140619, end: 20140623
  2. PRILOSEC [Concomitant]
     Active Substance: OMEPRAZOLE MAGNESIUM
     Indication: HERNIA
  3. ASTEPRO [Suspect]
     Active Substance: AZELASTINE HYDROCHLORIDE
     Indication: DYSPHONIA
     Dates: start: 20140619, end: 20140623

REACTIONS (5)
  - Condition aggravated [Unknown]
  - Upper-airway cough syndrome [Unknown]
  - Product use issue [Recovered/Resolved]
  - Dysphonia [Unknown]
  - Nasal congestion [Unknown]

NARRATIVE: CASE EVENT DATE: 20140619
